FAERS Safety Report 22276990 (Version 1)
Quarter: 2023Q2

REPORT INFORMATION
  Report Type: Spontaneous
  Country: US (occurrence: US)
  Receive Date: 20230503
  Receipt Date: 20230503
  Transmission Date: 20230721
  Serious: No
  Sender: FDA-Public Use
  Company Number: US-SANOFI-01594354

PATIENT
  Age: 72 Year
  Sex: Female

DRUGS (1)
  1. LANTUS SOLOSTAR [Suspect]
     Active Substance: INSULIN GLARGINE
     Indication: Type 2 diabetes mellitus
     Dosage: DRUG TREATMENT DURATION:AT LEAST 20 YEARS; TAKES 70 UNITS QAM AND 28 UNITS QHS

REACTIONS (3)
  - Cataract operation [Unknown]
  - Visual impairment [Unknown]
  - Inappropriate schedule of product administration [Unknown]
